FAERS Safety Report 16608912 (Version 1)
Quarter: 2019Q3

REPORT INFORMATION
  Report Type: Spontaneous
  Country: US (occurrence: US)
  Receive Date: 20190606
  Receipt Date: 20190606
  Transmission Date: 20191004
  Serious: Yes (Hospitalization)
  Sender: FDA-Public Use
  Company Number: None

PATIENT
  Age: 62 Year
  Sex: Female
  Weight: 99.79 kg

DRUGS (6)
  1. LEVETIRACETAM ER [Concomitant]
     Active Substance: LEVETIRACETAM
  2. LEVOTHYROXINE. [Concomitant]
     Active Substance: LEVOTHYROXINE
  3. PRAVASTATIN SODIUM. [Concomitant]
     Active Substance: PRAVASTATIN SODIUM
  4. TRANSDERM SCOP [Suspect]
     Active Substance: SCOPOLAMINE
     Indication: NAUSEA
     Dosage: ?          QUANTITY:1 DF DOSAGE FORM;OTHER ROUTE:APPLIED TO SKIN B/HIND EARS?
     Dates: start: 20190528, end: 20190530
  5. METFORMIN ER [Concomitant]
     Active Substance: METFORMIN HYDROCHLORIDE
  6. OMEPRAZOLE. [Concomitant]
     Active Substance: OMEPRAZOLE

REACTIONS (12)
  - Paraesthesia [None]
  - Cognitive disorder [None]
  - Nausea [None]
  - Headache [None]
  - Visual acuity reduced [None]
  - Cerebrovascular accident [None]
  - Balance disorder [None]
  - Dysphonia [None]
  - Vomiting [None]
  - Fear of falling [None]
  - Dry skin [None]
  - Dizziness [None]

NARRATIVE: CASE EVENT DATE: 20190602
